FAERS Safety Report 6652042-3 (Version None)
Quarter: 2010Q1

REPORT INFORMATION
  Report Type: 
  Country: None (occurrence: None)
  Receive Date: 20100325
  Receipt Date: 20100318
  Transmission Date: 20100710
  Serious: Yes (Hospitalization)
  Sender: FDA-Public Use
  Company Number: US-GENENTECH-299507

PATIENT
  Sex: Female
  Weight: 77.098 kg

DRUGS (5)
  1. XOLAIR [Suspect]
     Indication: ASTHMA
     Dosage: 150 UNK, Q4W
     Route: 058
     Dates: start: 20080328
  2. XOLAIR [Suspect]
     Indication: URTICARIA
  3. ALVESCO [Concomitant]
     Indication: DRUG USE FOR UNKNOWN INDICATION
  4. VERAMYST [Concomitant]
     Indication: DRUG USE FOR UNKNOWN INDICATION
  5. ATARAX [Concomitant]
     Indication: DRUG USE FOR UNKNOWN INDICATION

REACTIONS (1)
  - ATRIAL FIBRILLATION [None]
